FAERS Safety Report 21540205 (Version 2)
Quarter: 2022Q4

REPORT INFORMATION
  Report Type: Report from Study
  Country: CL (occurrence: CL)
  Receive Date: 20221102
  Receipt Date: 20221208
  Transmission Date: 20230113
  Serious: Yes (Death, Hospitalization, Other)
  Sender: FDA-Public Use
  Company Number: CL-JNJFOC-20221053301

PATIENT
  Age: 71 Year
  Sex: Male

DRUGS (1)
  1. IMBRUVICA [Suspect]
     Active Substance: IBRUTINIB
     Indication: Chronic lymphocytic leukaemia
     Dosage: THREE CAPSULES DAILY
     Route: 048
     Dates: start: 20171201, end: 20220820

REACTIONS (5)
  - Death [Fatal]
  - Chronic lymphocytic leukaemia [Fatal]
  - Drug ineffective [Fatal]
  - Lung disorder [Fatal]
  - COVID-19 [Fatal]

NARRATIVE: CASE EVENT DATE: 20220801
